FAERS Safety Report 22002792 (Version 1)
Quarter: 2023Q1

REPORT INFORMATION
  Report Type: Spontaneous
  Country: DE (occurrence: DE)
  Receive Date: 20230217
  Receipt Date: 20230217
  Transmission Date: 20230417
  Serious: Yes (Other)
  Sender: FDA-Public Use
  Company Number: DE-002147023-NVSC2023DE032696

PATIENT
  Age: 86 Year
  Sex: Male

DRUGS (6)
  1. ENTRESTO [Suspect]
     Active Substance: SACUBITRIL\VALSARTAN
     Indication: Left ventricular failure
     Dosage: UNK
     Route: 065
     Dates: start: 202204, end: 20221102
  2. ENTRESTO [Suspect]
     Active Substance: SACUBITRIL\VALSARTAN
     Dosage: 1 DOSAGE FORM, BID (97/103) (1-0-0), (49/51) (0-0-1)
     Route: 065
     Dates: start: 20221103
  3. POLYETHYLENE GLYCOL 3350 [Suspect]
     Active Substance: POLYETHYLENE GLYCOL 3350
     Indication: Product used for unknown indication
     Dosage: UNK
     Route: 065
  4. HYPROMELLOSES [Suspect]
     Active Substance: HYPROMELLOSES
     Indication: Lacrimal disorder
     Dosage: UNK
     Route: 065
  5. HYPROMELLOSES [Suspect]
     Active Substance: HYPROMELLOSES
     Dosage: UNK (INCREASED)
  6. TITANIUM DIOXIDE [Concomitant]
     Active Substance: TITANIUM DIOXIDE
     Indication: Product used for unknown indication
     Dosage: UNK
     Route: 065

REACTIONS (7)
  - Basal cell carcinoma [Unknown]
  - Lacrimation increased [Unknown]
  - Condition aggravated [Unknown]
  - Rash pustular [Recovered/Resolved]
  - Somnolence [Not Recovered/Not Resolved]
  - Fatigue [Not Recovered/Not Resolved]
  - Incorrect dose administered [Unknown]

NARRATIVE: CASE EVENT DATE: 20220101
